FAERS Safety Report 16505498 (Version 3)
Quarter: 2019Q3

REPORT INFORMATION
  Report Type: Report from Study
  Country: US (occurrence: US)
  Receive Date: 20190701
  Receipt Date: 20190809
  Transmission Date: 20191004
  Serious: No
  Sender: FDA-Public Use
  Company Number: US-SA-2019SA170929

PATIENT
  Age: 71 Year
  Sex: Female

DRUGS (1)
  1. INSULIN GLARGINE [Suspect]
     Active Substance: INSULIN GLARGINE
     Indication: DIABETES MELLITUS
     Dosage: SHE TAKES 65 UNITS OF LANTUS SOLOSTAR IN THE MORNING AND 55 UNITS IN THE EVENING

REACTIONS (5)
  - Inappropriate schedule of product administration [Unknown]
  - Hyperglycaemia [Unknown]
  - Incorrect dose administered by device [Unknown]
  - Device operational issue [Unknown]
  - Eye disorder [Unknown]
